FAERS Safety Report 23338172 (Version 2)
Quarter: 2024Q1

REPORT INFORMATION
  Report Type: Report from Study
  Country: PL (occurrence: PL)
  Receive Date: 20231226
  Receipt Date: 20240108
  Transmission Date: 20240410
  Serious: Yes (Hospitalization)
  Sender: FDA-Public Use
  Company Number: PL-ULTRAGENYX PHARMACEUTICAL INC.-PL-UGX-23-01609

PATIENT
  Age: 4 Year
  Sex: Male
  Weight: 24.4 kg

DRUGS (8)
  1. TRIHEPTANOIN [Suspect]
     Active Substance: TRIHEPTANOIN
     Indication: Carnitine-acylcarnitine translocase deficiency
     Dosage: 49 ML, DIVIDED INTO 7 DOSES VIA GASTROSTOMY
     Dates: start: 20210114
  2. TRIHEPTANOIN [Suspect]
     Active Substance: TRIHEPTANOIN
     Indication: Cardiomyopathy
  3. TRIHEPTANOIN [Suspect]
     Active Substance: TRIHEPTANOIN
     Indication: Psychomotor retardation
  4. PROPRANOLOL [Concomitant]
     Active Substance: PROPRANOLOL HYDROCHLORIDE
     Indication: Product used for unknown indication
     Dosage: UNK
  5. SPIRONOLACTONE [Concomitant]
     Active Substance: SPIRONOLACTONE
     Indication: Product used for unknown indication
  6. LEVOCARNITINE [Concomitant]
     Active Substance: LEVOCARNITINE
     Indication: Product used for unknown indication
  7. ERGOCALCIFEROL [Concomitant]
     Active Substance: ERGOCALCIFEROL
     Indication: Product used for unknown indication
  8. DOCOMEGA [Concomitant]
     Indication: Product used for unknown indication

REACTIONS (1)
  - Nasal obstruction [Recovered/Resolved]

NARRATIVE: CASE EVENT DATE: 20231114
